FAERS Safety Report 18284604 (Version 10)
Quarter: 2025Q2

REPORT INFORMATION
  Report Type: Report from Study
  Country: US (occurrence: US)
  Receive Date: 20200918
  Receipt Date: 20250527
  Transmission Date: 20250717
  Serious: Yes (Hospitalization, Other)
  Sender: TAKEDA
  Company Number: US-SHIRE-US202030185

PATIENT
  Age: 29 Year
  Sex: Female

DRUGS (5)
  1. VON WILLEBRAND FACTOR (RECOMBINANT) [Suspect]
     Active Substance: VON WILLEBRAND FACTOR (RECOMBINANT)
     Indication: Product used for unknown indication
     Dosage: 3000 INTERNATIONAL UNIT, 2/WEEK
  2. VON WILLEBRAND FACTOR (RECOMBINANT) [Suspect]
     Active Substance: VON WILLEBRAND FACTOR (RECOMBINANT)
  3. VON WILLEBRAND FACTOR (RECOMBINANT) [Suspect]
     Active Substance: VON WILLEBRAND FACTOR (RECOMBINANT)
     Dosage: 2672 INTERNATIONAL UNIT, Q2WEEKS
  4. VON WILLEBRAND FACTOR (RECOMBINANT) [Suspect]
     Active Substance: VON WILLEBRAND FACTOR (RECOMBINANT)
     Dosage: 2640 INTERNATIONAL UNIT, 2/WEEK
  5. VON WILLEBRAND FACTOR (RECOMBINANT) [Suspect]
     Active Substance: VON WILLEBRAND FACTOR (RECOMBINANT)

REACTIONS (8)
  - COVID-19 [Unknown]
  - Epistaxis [Unknown]
  - Mouth haemorrhage [Unknown]
  - Postpartum haemorrhage [Unknown]
  - Heavy menstrual bleeding [Unknown]
  - Gingival bleeding [Unknown]
  - Drug hypersensitivity [Unknown]
  - Pregnancy [Recovered/Resolved]

NARRATIVE: CASE EVENT DATE: 20200908
